FAERS Safety Report 9860546 (Version 1)
Quarter: 2014Q1

REPORT INFORMATION
  Report Type: Spontaneous
  Country: US (occurrence: US)
  Receive Date: 20140202
  Receipt Date: 20140202
  Transmission Date: 20141002
  Serious: Yes (Hospitalization)
  Sender: FDA-Public Use
  Company Number: PHHY2014US009334

PATIENT
  Age: 37 Year
  Sex: Female

DRUGS (8)
  1. CLONAZEPAM [Suspect]
  2. PAROXETINE [Suspect]
  3. QUETIAPINE [Suspect]
  4. FLUOXETINE [Suspect]
  5. LAMOTRIGINE [Suspect]
  6. LORAZEPAM [Suspect]
  7. HALOPERIDOL [Suspect]
  8. GLYBURIDE [Suspect]

REACTIONS (14)
  - Loss of consciousness [Recovered/Resolved]
  - Psychiatric symptom [Recovered/Resolved]
  - Blood pressure increased [Unknown]
  - Anxiety [Unknown]
  - Electrocardiogram QT prolonged [Unknown]
  - Hypertension [Unknown]
  - Transaminases increased [Unknown]
  - Pre-eclampsia [Unknown]
  - Protein urine present [Unknown]
  - Gestational diabetes [Unknown]
  - Hyperglycaemia [Unknown]
  - Suicidal behaviour [Unknown]
  - Intentional overdose [Unknown]
  - Maternal exposure during pregnancy [Unknown]
